FAERS Safety Report 15980699 (Version 1)
Quarter: 2019Q1

REPORT INFORMATION
  Report Type: Spontaneous
  Country: FR (occurrence: FR)
  Receive Date: 20190219
  Receipt Date: 20190219
  Transmission Date: 20190418
  Serious: Yes (Other)
  Sender: FDA-Public Use
  Company Number: FR-MYLANLABS-2019M1015652

PATIENT
  Age: 72 Year
  Sex: Female

DRUGS (4)
  1. XYZALL [Concomitant]
     Active Substance: LEVOCETIRIZINE DIHYDROCHLORIDE
  2. CALCITONIN SALMON MYLAN [Suspect]
     Active Substance: CALCITONIN SALMON
     Indication: COMPLEX REGIONAL PAIN SYNDROME
     Dosage: 50 INTERNATIONAL UNIT, QD
     Route: 058
     Dates: start: 20190207
  3. CARDEGIC [Concomitant]
     Active Substance: ASPIRIN DL-LYSINE
  4. ISOPTINE [Concomitant]
     Active Substance: VERAPAMIL HYDROCHLORIDE

REACTIONS (2)
  - Paraesthesia oral [Unknown]
  - Throat irritation [Unknown]

NARRATIVE: CASE EVENT DATE: 20190207
